FAERS Safety Report 9779793 (Version 2)
Quarter: 2013Q4

REPORT INFORMATION
  Report Type: Spontaneous
  Country: JP (occurrence: JP)
  Receive Date: 20131223
  Receipt Date: 20131230
  Transmission Date: 20140711
  Serious: Yes (Hospitalization)
  Sender: FDA-Public Use
  Company Number: JP-GLAXOSMITHKLINE-B0950392A

PATIENT
  Age: 65 Year
  Sex: Male

DRUGS (4)
  1. FLUTIDE DISKUS [Suspect]
     Indication: ASTHMA
     Dosage: 400MCG TWICE PER DAY
     Route: 055
  2. SERETIDE (50MCG/250MCG) [Suspect]
     Indication: ASTHMA
     Dosage: 250MCG TWICE PER DAY
     Route: 055
  3. SEREVENT 50 DISKUS [Suspect]
     Indication: ASTHMA
     Dosage: 50MCG TWICE PER DAY
     Route: 055
  4. HOKUNALIN [Concomitant]
     Indication: ASTHMA
     Route: 062

REACTIONS (3)
  - Asthma [Recovering/Resolving]
  - Musculoskeletal stiffness [Unknown]
  - Musculoskeletal stiffness [Unknown]
